FAERS Safety Report 4937288-4 (Version None)
Quarter: 2006Q1

REPORT INFORMATION
  Report Type: 
  Country: None (occurrence: None)
  Receive Date: 20060309
  Receipt Date: 20051128
  Transmission Date: 20060701
  Serious: Yes (Life-Threatening, Hospitalization, Other)
  Sender: FDA-Public Use
  Company Number: FR-BRISTOL-MYERS SQUIBB COMPANY-13306121

PATIENT
  Age: 64 Year
  Sex: Female
  Weight: 75 kg

DRUGS (9)
  1. HOLOXAN [Suspect]
     Indication: DRUG USE FOR UNKNOWN INDICATION
     Dates: start: 20051117, end: 20051119
  2. EMEND [Interacting]
     Indication: PROPHYLAXIS OF NAUSEA AND VOMITING
     Dates: start: 20051117, end: 20051119
  3. SOLU-MEDROL [Concomitant]
  4. ZOPHREN [Concomitant]
     Dates: start: 20051117, end: 20051119
  5. LASILIX [Concomitant]
     Dates: start: 20051118, end: 20051120
  6. PLATIN [Concomitant]
     Dates: start: 20051117, end: 20051119
  7. ADRIAMYCIN PFS [Concomitant]
     Dates: start: 20051117, end: 20051119
  8. MESNA [Concomitant]
     Dates: start: 20051117, end: 20051119
  9. CARDIOXANE [Concomitant]
     Dates: start: 20051117, end: 20051119

REACTIONS (5)
  - APLASIA [None]
  - DRUG INTERACTION [None]
  - ENTEROCOLITIS [None]
  - GASTROINTESTINAL HAEMORRHAGE [None]
  - RENAL FAILURE ACUTE [None]
